FAERS Safety Report 5489529-5 (Version None)
Quarter: 2007Q4

REPORT INFORMATION
  Report Type: 
  Country: None (occurrence: None)
  Receive Date: 20071016
  Receipt Date: 20071016
  Transmission Date: 20080405
  Serious: Yes (Other)
  Sender: FDA-Public Use
  Company Number: None

PATIENT
  Age: 54 Year
  Sex: Female

DRUGS (1)
  1. BETASERON [Suspect]
     Indication: MULTIPLE SCLEROSIS
     Dosage: 1 ML EVERY OTHER DAY SQ
     Route: 058
     Dates: start: 20070915, end: 20071015

REACTIONS (3)
  - DYSPNOEA [None]
  - MYALGIA [None]
  - RASH [None]
